FAERS Safety Report 4939305-4 (Version None)
Quarter: 2006Q1

REPORT INFORMATION
  Report Type: 
  Country: None (occurrence: None)
  Receive Date: 20060306
  Receipt Date: 20060215
  Transmission Date: 20060701
  Serious: Yes (Hospitalization)
  Sender: FDA-Public Use
  Company Number: DSA_27794_2006

PATIENT
  Age: 78 Year
  Sex: Female

DRUGS (5)
  1. ENALAPRIL MALEATE [Suspect]
     Dosage: DF UNK PO
     Route: 048
     Dates: end: 20050820
  2. FELODIPINE [Suspect]
     Dosage: DF UNK PO
     Route: 048
     Dates: end: 20050820
  3. BECLOMETHASONE DIPROPIONATE [Concomitant]
  4. ALBUTEROL [Concomitant]
  5. ACETAMINOPHEN [Concomitant]

REACTIONS (1)
  - FALL [None]
